FAERS Safety Report 13835338 (Version 3)
Quarter: 2017Q3

REPORT INFORMATION
  Report Type: Spontaneous
  Country: AU (occurrence: AU)
  Receive Date: 20170804
  Receipt Date: 20170906
  Transmission Date: 20171127
  Serious: Yes (Other)
  Sender: FDA-Public Use
  Company Number: AU-AMGEN-AUSSP2017116074

PATIENT
  Age: 64 Year
  Sex: Male
  Weight: 72.6 kg

DRUGS (7)
  1. XGEVA [Suspect]
     Active Substance: DENOSUMAB
     Indication: PROSTATE CANCER METASTATIC
  2. DOCETAXEL. [Concomitant]
     Active Substance: DOCETAXEL
     Dosage: UNK
  3. ZOLADEX [Concomitant]
     Active Substance: GOSERELIN ACETATE
     Dosage: UNK
  4. AMOXIL [Concomitant]
     Active Substance: AMOXICILLIN
     Dosage: 500 MG, BID
  5. CHLORHEXIDINE [Concomitant]
     Active Substance: CHLORHEXIDINE
     Dosage: UNK, QID
  6. XGEVA [Suspect]
     Active Substance: DENOSUMAB
     Indication: PANCREATIC CARCINOMA
     Dosage: Q6WK
     Route: 058
     Dates: start: 20121101
  7. COSUDEX [Concomitant]
     Active Substance: BICALUTAMIDE

REACTIONS (2)
  - Osteonecrosis of jaw [Unknown]
  - Vasculitis [Unknown]

NARRATIVE: CASE EVENT DATE: 201509
